FAERS Safety Report 6664855-2 (Version None)
Quarter: 2010Q2

REPORT INFORMATION
  Report Type: 
  Country: None (occurrence: None)
  Receive Date: 20100402
  Receipt Date: 20100326
  Transmission Date: 20101027
  Serious: Yes (Other)
  Sender: FDA-Public Use
  Company Number: US-BIOGENIDEC-2010BI010184

PATIENT
  Age: 56 Year
  Sex: Female

DRUGS (3)
  1. AVONEX [Suspect]
     Indication: MULTIPLE SCLEROSIS
     Route: 030
     Dates: start: 20100201, end: 20100201
  2. AVONEX [Suspect]
     Route: 030
     Dates: start: 20100201, end: 20100201
  3. PREDNISONE TAB [Concomitant]
     Indication: MULTIPLE SCLEROSIS RELAPSE

REACTIONS (1)
  - VENTRICULAR EXTRASYSTOLES [None]
